FAERS Safety Report 8887614 (Version 1)
Quarter: 2012Q4

REPORT INFORMATION
  Report Type: Spontaneous
  Country: US (occurrence: None)
  Receive Date: 20121101
  Receipt Date: 20121101
  Transmission Date: 20130627
  Serious: Yes (Life-Threatening, Hospitalization)
  Sender: FDA-Public Use
  Company Number: None

PATIENT
  Age: 39 Year
  Sex: Female
  Weight: 65.77 kg

DRUGS (1)
  1. AMOX TR-K CLV [Suspect]
     Indication: SINUS INFECTION
     Dates: start: 20121026, end: 20121026

REACTIONS (1)
  - Anaphylactic reaction [None]
